FAERS Safety Report 8884722 (Version 3)
Quarter: 2012Q4

REPORT INFORMATION
  Report Type: Report from Study
  Country: CZ (occurrence: CZ)
  Receive Date: 20121102
  Receipt Date: 20121130
  Transmission Date: 20130627
  Serious: Yes (Hospitalization)
  Sender: FDA-Public Use
  Company Number: CZ-NOVOPROD-362777

PATIENT
  Age: 67 Year
  Sex: Female
  Weight: 71.9 kg

DRUGS (7)
  1. LIRAGLUTIDE FLEXPEN [Suspect]
     Indication: TYPE 2 DIABETES MELLITUS
     Dosage: 1.8 mg, qd
     Route: 058
     Dates: start: 20110930
  2. PENTOMER [Concomitant]
  3. KALIUM CHLORATUM [Concomitant]
  4. LUSOPRESS [Concomitant]
  5. RILMENIDIN TEVA [Concomitant]
  6. TEZEO [Concomitant]
  7. ORCAL [Concomitant]

REACTIONS (1)
  - Hepatic enzyme increased [Recovering/Resolving]
